FAERS Safety Report 8809537 (Version 1)
Quarter: 2012Q4

REPORT INFORMATION
  Report Type: 
  Country: HR (occurrence: HR)
  Receive Date: 20120926
  Receipt Date: 20120926
  Transmission Date: 20130627
  Serious: Yes (Disabling)
  Sender: FDA-Public Use
  Company Number: HR-PFIZER INC-2012238715

PATIENT
  Age: 36 Year
  Sex: Male
  Weight: 70 kg

DRUGS (1)
  1. MEDROL [Suspect]

REACTIONS (2)
  - Osteoporosis [Unknown]
  - Cataract [Unknown]
